FAERS Safety Report 26190897 (Version 1)
Quarter: 2025Q4

REPORT INFORMATION
  Report Type: Spontaneous
  Country: GB (occurrence: GB)
  Receive Date: 20251223
  Receipt Date: 20251223
  Transmission Date: 20260118
  Serious: Yes (Congenital Anomaly, Other)
  Sender: ABBVIE
  Company Number: GB-ABBVIE-6602512

PATIENT

DRUGS (1)
  1. ATOGEPANT [Suspect]
     Active Substance: ATOGEPANT
     Indication: Maternal exposure timing unspecified
     Route: 064

REACTIONS (2)
  - Univentricular heart [Not Recovered/Not Resolved]
  - Foetal exposure during pregnancy [Unknown]
